FAERS Safety Report 14838153 (Version 7)
Quarter: 2019Q2

REPORT INFORMATION
  Report Type: Report from Study
  Country: CA (occurrence: CA)
  Receive Date: 20180502
  Receipt Date: 20190617
  Transmission Date: 20190711
  Serious: Yes (Other)
  Sender: FDA-Public Use
  Company Number: CA-ROCHE-1696490

PATIENT
  Age: 31 Year
  Sex: Female
  Weight: 160 kg

DRUGS (9)
  1. ACTEMRA [Suspect]
     Active Substance: TOCILIZUMAB
     Route: 042
     Dates: start: 20170815
  2. ACTEMRA [Suspect]
     Active Substance: TOCILIZUMAB
     Dosage: INFUSION NO. 29
     Route: 042
     Dates: start: 20180423
  3. CELEBREX [Suspect]
     Active Substance: CELECOXIB
     Indication: PRODUCT USED FOR UNKNOWN INDICATION
     Route: 065
  4. METHOTREXATE. [Concomitant]
     Active Substance: METHOTREXATE
     Indication: PRODUCT USED FOR UNKNOWN INDICATION
  5. ENBREL [Concomitant]
     Active Substance: ETANERCEPT
     Indication: PRODUCT USED FOR UNKNOWN INDICATION
  6. FOLIC ACID. [Concomitant]
     Active Substance: FOLIC ACID
     Indication: PRODUCT USED FOR UNKNOWN INDICATION
  7. SYNTHROID [Concomitant]
     Active Substance: LEVOTHYROXINE SODIUM
     Indication: PRODUCT USED FOR UNKNOWN INDICATION
     Route: 065
  8. ACTEMRA [Suspect]
     Active Substance: TOCILIZUMAB
     Indication: RHEUMATOID ARTHRITIS
     Route: 042
     Dates: start: 20151216, end: 20180619
  9. ACTEMRA [Suspect]
     Active Substance: TOCILIZUMAB
     Route: 042
     Dates: start: 20171031

REACTIONS (28)
  - Heart rate decreased [Unknown]
  - Body temperature decreased [Unknown]
  - Blood pressure increased [Unknown]
  - Blood pressure diastolic increased [Unknown]
  - Gastroenteritis viral [Recovered/Resolved]
  - Weight increased [Not Recovered/Not Resolved]
  - Lower respiratory tract infection [Recovering/Resolving]
  - Bronchitis [Not Recovered/Not Resolved]
  - Feeling abnormal [Unknown]
  - Influenza like illness [Unknown]
  - Influenza [Unknown]
  - Rash [Not Recovered/Not Resolved]
  - Diarrhoea [Unknown]
  - Tooth infection [Unknown]
  - Ulcer [Recovered/Resolved]
  - Nasopharyngitis [Not Recovered/Not Resolved]
  - Productive cough [Not Recovered/Not Resolved]
  - Tooth disorder [Recovered/Resolved]
  - Musculoskeletal disorder [Not Recovered/Not Resolved]
  - Pneumonia [Not Recovered/Not Resolved]
  - Influenza [Recovered/Resolved]
  - Blood pressure increased [Unknown]
  - Fatigue [Unknown]
  - Nasopharyngitis [Unknown]
  - Blood thyroid stimulating hormone increased [Unknown]
  - Oxygen saturation decreased [Unknown]
  - Oxygen saturation decreased [Unknown]
  - Weight decreased [Unknown]

NARRATIVE: CASE EVENT DATE: 20151231
